FAERS Safety Report 12281425 (Version 1)
Quarter: 2016Q2

REPORT INFORMATION
  Report Type: Spontaneous
  Country: US (occurrence: None)
  Receive Date: 20160418
  Receipt Date: 20160418
  Transmission Date: 20160815
  Serious: No
  Sender: FDA-Public Use
  Company Number: None

PATIENT
  Age: 33 Year
  Sex: Male
  Weight: 71.67 kg

DRUGS (2)
  1. PHENERGAN [Suspect]
     Active Substance: PROMETHAZINE HYDROCHLORIDE
     Indication: NAUSEA
     Route: 048
     Dates: start: 20160414, end: 20160414
  2. PROBIOTIC [Concomitant]
     Active Substance: PROBIOTICS NOS

REACTIONS (6)
  - Headache [None]
  - Insomnia [None]
  - Eye irritation [None]
  - Ocular hyperaemia [None]
  - Somnolence [None]
  - Vision blurred [None]

NARRATIVE: CASE EVENT DATE: 20160414
